FAERS Safety Report 16975364 (Version 1)
Quarter: 2019Q4

REPORT INFORMATION
  Report Type: Spontaneous
  Country: US (occurrence: US)
  Receive Date: 20191030
  Receipt Date: 20191030
  Transmission Date: 20200122
  Serious: Yes (Other)
  Sender: FDA-Public Use
  Company Number: US-GLAXOSMITHKLINE-US2019190895

PATIENT
  Sex: Female

DRUGS (1)
  1. FLOVENT [Suspect]
     Active Substance: FLUTICASONE PROPIONATE
     Indication: PRODUCT USED FOR UNKNOWN INDICATION
     Dosage: 2 PUFF(S), BID
     Route: 065

REACTIONS (9)
  - Lethargy [Recovered/Resolved]
  - Malaise [Recovered/Resolved]
  - Toe operation [Recovered/Resolved]
  - Product dose omission [Recovered/Resolved]
  - Plantar fasciitis [Recovered/Resolved]
  - Intentional product misuse [Unknown]
  - Diabetes mellitus inadequate control [Recovered/Resolved]
  - Peripheral nerve operation [Recovered/Resolved]
  - Influenza [Recovered/Resolved]
